FAERS Safety Report 8101563-5 (Version None)
Quarter: 2012Q1

REPORT INFORMATION
  Report Type: 
  Country: None (occurrence: None)
  Receive Date: 20120129
  Receipt Date: 20110919
  Transmission Date: 20120608
  Serious: No
  Sender: FDA-Public Use
  Company Number: US-ABBOTT-11P-163-0855844-00

PATIENT
  Sex: Male
  Weight: 77.18 kg

DRUGS (6)
  1. DEXALONE [Concomitant]
     Indication: GASTROOESOPHAGEAL REFLUX DISEASE
  2. HUMIRA [Suspect]
     Indication: PSORIASIS
  3. FLOMAX [Concomitant]
     Indication: PROSTATIC DISORDER
  4. BYSTOLIC [Concomitant]
     Indication: HYPERTENSION
  5. HUMIRA [Suspect]
     Indication: RHEUMATOID ARTHRITIS
     Dates: start: 20110401, end: 20110801
  6. ELAVIL [Concomitant]
     Indication: TREMOR

REACTIONS (1)
  - PSORIASIS [None]
